FAERS Safety Report 11095953 (Version 1)
Quarter: 2015Q2

REPORT INFORMATION
  Report Type: Spontaneous
  Country: US (occurrence: None)
  Receive Date: 20150506
  Receipt Date: 20150506
  Transmission Date: 20150821
  Serious: Yes (Other)
  Sender: FDA-Public Use
  Company Number: None

PATIENT
  Age: 69 Year
  Sex: Female

DRUGS (14)
  1. CARVEDILOL. [Concomitant]
     Active Substance: CARVEDILOL
  2. VITAMIN D3 [Concomitant]
     Active Substance: CHOLECALCIFEROL
  3. IRON [Concomitant]
     Active Substance: IRON
  4. AMLODIPINE [Concomitant]
     Active Substance: AMLODIPINE BESYLATE
  5. EDECRIN [Concomitant]
     Active Substance: ETHACRYNIC ACID
  6. EPLERENONE. [Concomitant]
     Active Substance: EPLERENONE
  7. CALCIUM [Concomitant]
     Active Substance: CALCIUM
  8. VITAMIN C [Concomitant]
     Active Substance: ASCORBIC ACID
  9. GARLIC. [Concomitant]
     Active Substance: GARLIC
  10. VALSARTAN 320 MG MYLAN [Suspect]
     Active Substance: VALSARTAN
     Indication: HYPERTENSION
     Route: 048
     Dates: start: 20150331, end: 20150425
  11. BORON [Concomitant]
     Active Substance: BORON
  12. GABAPENTIN. [Concomitant]
     Active Substance: GABAPENTIN
  13. DIOVAN [Concomitant]
     Active Substance: VALSARTAN
  14. ZINC [Concomitant]
     Active Substance: ZINC\ZINC CHLORIDE

REACTIONS (6)
  - Eye swelling [None]
  - Asthenia [None]
  - Fatigue [None]
  - Swelling face [None]
  - Joint swelling [None]
  - Peripheral swelling [None]

NARRATIVE: CASE EVENT DATE: 20150403
